FAERS Safety Report 4598415-4 (Version None)
Quarter: 2005Q1

REPORT INFORMATION
  Report Type: 
  Country: None (occurrence: None)
  Receive Date: 20050301
  Receipt Date: 20050301
  Transmission Date: 20050727
  Serious: Yes (Death, Life-Threatening, Hospitalization)
  Sender: FDA-Public Use
  Company Number: None

PATIENT
  Age: 73 Year
  Sex: Female

DRUGS (2)
  1. CISPLATIN [Suspect]
     Indication: NASOPHARYNGEAL CANCER
     Dosage: 100 MG/M2
     Dates: start: 20050131
  2. RADIATION [Suspect]

REACTIONS (5)
  - FEEDING TUBE COMPLICATION [None]
  - HYPOXIA [None]
  - MENTAL IMPAIRMENT [None]
  - NEUTROPENIA [None]
  - PNEUMONIA ASPIRATION [None]
